FAERS Safety Report 19656695 (Version 1)
Quarter: 2021Q3

REPORT INFORMATION
  Report Type: Spontaneous
  Country: DE (occurrence: DE)
  Receive Date: 20210804
  Receipt Date: 20210804
  Transmission Date: 20211014
  Serious: Yes (Life-Threatening, Hospitalization, Other)
  Sender: FDA-Public Use
  Company Number: DE-ACCORD-233792

PATIENT
  Age: 80 Year
  Sex: Female

DRUGS (9)
  1. RAMIPRIL. [Concomitant]
     Active Substance: RAMIPRIL
     Dosage: 1?0?1
  2. INSULIN GLARGINE [Concomitant]
     Active Substance: INSULIN GLARGINE
  3. CLOZAPINE. [Suspect]
     Active Substance: CLOZAPINE
  4. MELPERONE/MELPERONE HYDROCHLORIDE [Concomitant]
     Active Substance: MELPERONE
     Dosage: 0?0?1
  5. URAPIDIL [Concomitant]
     Active Substance: URAPIDIL
     Dosage: 1?0?1
  6. SIMVASTATIN. [Concomitant]
     Active Substance: SIMVASTATIN
     Dosage: 0?0?1
  7. AMLODIPINE [Concomitant]
     Active Substance: AMLODIPINE BESYLATE
     Dosage: 1?0?1
  8. METFORMIN [Concomitant]
     Active Substance: METFORMIN HYDROCHLORIDE
     Dosage: 1?0?1
  9. METOPROLOL. [Concomitant]
     Active Substance: METOPROLOL
     Dosage: 1?0?1

REACTIONS (3)
  - Loss of consciousness [Recovered/Resolved]
  - Product dispensing error [Unknown]
  - Procalcitonin increased [Recovered/Resolved]
